FAERS Safety Report 10669076 (Version 2)
Quarter: 2015Q1

REPORT INFORMATION
  Report Type: Spontaneous
  Country: US (occurrence: US)
  Receive Date: 20141222
  Receipt Date: 20150209
  Transmission Date: 20150720
  Serious: Yes (Hospitalization)
  Sender: FDA-Public Use
  Company Number: US-GLAXOSMITHKLINE-US2014037799

PATIENT
  Age: 70 Year
  Sex: Female

DRUGS (14)
  1. ADVAIR DISKUS [Suspect]
     Active Substance: FLUTICASONE PROPIONATE\SALMETEROL XINAFOATE
     Indication: EMPHYSEMA
     Dosage: 250/50
     Route: 055
     Dates: start: 2012
  2. CLONIDINE. [Concomitant]
     Active Substance: CLONIDINE
  3. ADVAIR DISKUS [Suspect]
     Active Substance: FLUTICASONE PROPIONATE\SALMETEROL XINAFOATE
     Dosage: UNK
     Dates: start: 2012
  4. XANAX [Concomitant]
     Active Substance: ALPRAZOLAM
  5. ENALAPRIL [Concomitant]
     Active Substance: ENALAPRIL
  6. PLAVIX [Concomitant]
     Active Substance: CLOPIDOGREL BISULFATE
  7. TUDORZA PRESSAIR [Concomitant]
     Active Substance: ACLIDINIUM BROMIDE
  8. AMLODIPINE [Concomitant]
     Active Substance: AMLODIPINE BESYLATE
  9. ADVAIR DISKUS [Suspect]
     Active Substance: FLUTICASONE PROPIONATE\SALMETEROL XINAFOATE
     Indication: EMPHYSEMA
     Dosage: UNK
  10. DEPAKOTE [Concomitant]
     Active Substance: DIVALPROEX SODIUM
  11. TRAMADOL [Concomitant]
     Active Substance: TRAMADOL
  12. VENTOLIN [Concomitant]
     Active Substance: ALBUTEROL SULFATE
  13. HYOSCYAMINE [Concomitant]
     Active Substance: HYOSCYAMINE
  14. FAMOTIDINE. [Concomitant]
     Active Substance: FAMOTIDINE

REACTIONS (3)
  - Product quality issue [Unknown]
  - Therapeutic response unexpected [Unknown]
  - Dyspnoea [Not Recovered/Not Resolved]

NARRATIVE: CASE EVENT DATE: 201409
